FAERS Safety Report 17539397 (Version 3)
Quarter: 2020Q1

REPORT INFORMATION
  Report Type: Spontaneous
  Country: US (occurrence: US)
  Receive Date: 20200313
  Receipt Date: 20200325
  Transmission Date: 20200409
  Serious: No
  Sender: FDA-Public Use
  Company Number: US-PFIZER INC-2019335034

PATIENT
  Age: 89 Year
  Sex: Female
  Weight: 86.18 kg

DRUGS (1)
  1. NITROGLYCERIN. [Suspect]
     Active Substance: NITROGLYCERIN
     Indication: CHEST PAIN
     Dosage: 0.4 MG, AS NEEDED(UNDER THE TONGUE EVERY 5 (FIVE) MINUTES)
     Route: 060

REACTIONS (2)
  - Drug ineffective [Unknown]
  - Dizziness [Unknown]
